FAERS Safety Report 9238523 (Version 2)
Quarter: 2013Q2

REPORT INFORMATION
  Report Type: Spontaneous
  Country: US (occurrence: US)
  Receive Date: 20130418
  Receipt Date: 20130613
  Transmission Date: 20140414
  Serious: Yes (Death)
  Sender: FDA-Public Use
  Company Number: US-BAYER-2013-047862

PATIENT
  Age: 31 Year
  Sex: Male

DRUGS (2)
  1. CIPRO [Suspect]
     Indication: ABDOMINAL PAIN UPPER
     Dosage: 1 DF, BID
     Route: 048
  2. METRONIDAZOLE [Suspect]
     Indication: ABDOMINAL PAIN UPPER
     Dosage: 1 DF, TID
     Route: 048

REACTIONS (1)
  - Death [Fatal]
